FAERS Safety Report 19840573 (Version 1)
Quarter: 2021Q3

REPORT INFORMATION
  Report Type: Spontaneous
  Country: US (occurrence: US)
  Receive Date: 20210914
  Receipt Date: 20210914
  Transmission Date: 20211014
  Serious: Yes (Other)
  Sender: FDA-Public Use
  Company Number: None

PATIENT
  Age: 60 Year
  Sex: Female

DRUGS (1)
  1. SYRINGE OF TETRACAINE [Suspect]
     Active Substance: TETRACAINE
     Dosage: ?          OTHER ROUTE:SYRINGE EVERY 2 HR AS NEEDED TO RIGHT EYE?
     Dates: start: 20210314, end: 20210315

REACTIONS (1)
  - Device use issue [None]

NARRATIVE: CASE EVENT DATE: 20210314
